FAERS Safety Report 18426312 (Version 1)
Quarter: 2020Q4

REPORT INFORMATION
  Report Type: Spontaneous
  Country: US (occurrence: US)
  Receive Date: 20201026
  Receipt Date: 20201026
  Transmission Date: 20210114
  Serious: No
  Sender: FDA-Public Use
  Company Number: US-SA-2020SA298325

PATIENT

DRUGS (2)
  1. FLOMAX [Suspect]
     Active Substance: TAMSULOSIN HYDROCHLORIDE
     Route: 065
  2. CAPLYTA [Interacting]
     Active Substance: LUMATEPERONE
     Indication: SCHIZOPHRENIA
     Dosage: 42 MG, QD
     Route: 048

REACTIONS (11)
  - Gait disturbance [Unknown]
  - Feeling cold [Unknown]
  - Paraesthesia [Unknown]
  - Chills [Unknown]
  - Fear [Unknown]
  - Hypersomnia [Unknown]
  - Dizziness postural [Unknown]
  - Dizziness [Unknown]
  - Drug interaction [Unknown]
  - Feeling abnormal [Unknown]
  - Blood pressure decreased [Unknown]
